FAERS Safety Report 12609611 (Version 1)
Quarter: 2016Q3

REPORT INFORMATION
  Report Type: Spontaneous
  Country: DZ (occurrence: DZ)
  Receive Date: 20160801
  Receipt Date: 20160801
  Transmission Date: 20161109
  Serious: Yes (Death)
  Sender: FDA-Public Use
  Company Number: DZ-ASTRAZENECA-2016SE82143

PATIENT
  Age: 84 Year
  Sex: Female

DRUGS (1)
  1. MOPRAL [Suspect]
     Active Substance: OMEPRAZOLE SODIUM
     Route: 048

REACTIONS (1)
  - Death [Fatal]

NARRATIVE: CASE EVENT DATE: 20160725
